FAERS Safety Report 15183720 (Version 1)
Quarter: 2018Q3

REPORT INFORMATION
  Report Type: Spontaneous
  Country: CA (occurrence: CA)
  Receive Date: 20180723
  Receipt Date: 20180723
  Transmission Date: 20181010
  Serious: Yes (Death)
  Sender: FDA-Public Use
  Company Number: CA-ACTELION-A-NJ2018-175738

PATIENT
  Age: 78 Year
  Sex: Female

DRUGS (10)
  1. ADCIRCA [Concomitant]
     Active Substance: TADALAFIL
  2. OXYGEN. [Concomitant]
     Active Substance: OXYGEN
  3. MORPHINE [Concomitant]
     Active Substance: MORPHINE
  4. XARELTO [Concomitant]
     Active Substance: RIVAROXABAN
  5. VITAMIN D [Concomitant]
     Active Substance: CHOLECALCIFEROL
  6. OPSUMIT [Suspect]
     Active Substance: MACITENTAN
     Indication: PULMONARY ARTERIAL HYPERTENSION
     Dosage: UNK MG, UNK
     Route: 048
  7. ADALAT [Concomitant]
     Active Substance: NIFEDIPINE
  8. UPTRAVI [Suspect]
     Active Substance: SELEXIPAG
     Indication: PULMONARY ARTERIAL HYPERTENSION
     Dosage: 200 MCG, UNK
     Route: 048
     Dates: start: 20180402
  9. TYLENOL [Concomitant]
     Active Substance: ACETAMINOPHEN
  10. PANTOPRAZOLE [Concomitant]
     Active Substance: PANTOPRAZOLE

REACTIONS (1)
  - Pulmonary hypertension [Fatal]
